FAERS Safety Report 19974168 (Version 2)
Quarter: 2021Q4

REPORT INFORMATION
  Report Type: Spontaneous
  Country: FR (occurrence: FR)
  Receive Date: 20211020
  Receipt Date: 20211110
  Transmission Date: 20220303
  Serious: Yes (Hospitalization, Other)
  Sender: FDA-Public Use
  Company Number: FR-GLAXOSMITHKLINE-FR2021EME214104

PATIENT
  Age: 52 Year
  Sex: Female

DRUGS (6)
  1. PAROXETINE HYDROCHLORIDE [Suspect]
     Active Substance: PAROXETINE HYDROCHLORIDE
     Indication: Depression
     Dosage: 2 DOSAGE FORM, QD (20 MILLIGRAM)
     Route: 065
     Dates: start: 202108
  2. ATARAX [Suspect]
     Active Substance: HYDROXYZINE HYDROCHLORIDE
     Indication: Anxiety
     Dosage: 1 DOSAGE FORM, QD, IN THE EVENING;
     Route: 048
     Dates: start: 20210626, end: 2021
  3. ZOPICLONE [Suspect]
     Active Substance: ZOPICLONE
     Indication: Insomnia
     Dosage: 0.5 DOSAGE FORM, QD (7.5 MILLIGRAM), ONE YEAR
     Route: 065
     Dates: start: 2020
  4. MOMETASONE [Suspect]
     Active Substance: MOMETASONE
     Indication: Nasal obstruction
     Dosage: 2 DOSAGE FORM, QD, IN EACH NOSTRIL, NASAL
     Route: 045
     Dates: start: 20210626, end: 2021
  5. ALPRAZOLAM [Concomitant]
     Active Substance: ALPRAZOLAM
     Indication: Anxiety
     Dosage: UNK
     Route: 065
     Dates: start: 20200304
  6. ACETAMINOPHEN [Concomitant]
     Active Substance: ACETAMINOPHEN
     Indication: Pain
     Dosage: UNK
     Route: 065

REACTIONS (4)
  - Toxic skin eruption [Recovering/Resolving]
  - Pulmonary embolism [Recovered/Resolved]
  - Phlebitis [Recovered/Resolved]
  - Alopecia [Unknown]

NARRATIVE: CASE EVENT DATE: 20210801
